FAERS Safety Report 4540706-7 (Version None)
Quarter: 2004Q4

REPORT INFORMATION
  Report Type: 
  Country: None (occurrence: None)
  Receive Date: 20041229
  Receipt Date: 20041216
  Transmission Date: 20050328
  Serious: Yes (Other)
  Sender: FDA-Public Use
  Company Number: 200419650US

PATIENT
  Sex: Female

DRUGS (5)
  1. KETEK [Suspect]
     Indication: PYREXIA
     Route: 048
  2. KETEK [Suspect]
     Indication: RESPIRATORY DISORDER
     Route: 048
  3. KETEK [Suspect]
     Indication: RHINITIS
     Route: 048
  4. ZOCOR [Concomitant]
     Dosage: DOSE: UNK
  5. WELLBUTRIN [Concomitant]
     Dosage: DOSE: UNK

REACTIONS (3)
  - BLOOD IMMUNOGLOBULIN M INCREASED [None]
  - CYTOMEGALOVIRUS ANTIBODY POSITIVE [None]
  - HEPATITIS [None]
